FAERS Safety Report 6883743-X (Version None)
Quarter: 2010Q3

REPORT INFORMATION
  Report Type: 
  Country: None (occurrence: None)
  Receive Date: 20100729
  Receipt Date: 20100714
  Transmission Date: 20110219
  Serious: Yes (Hospitalization)
  Sender: FDA-Public Use
  Company Number: A0872805A

PATIENT
  Age: 65 Year
  Sex: Male
  Weight: 106 kg

DRUGS (1)
  1. ROSIGLITAZONE MALEATE [Suspect]
     Indication: DIABETES MELLITUS
     Route: 048

REACTIONS (2)
  - CORONARY ARTERY DISEASE [None]
  - LOWER LIMB FRACTURE [None]
